FAERS Safety Report 10717976 (Version 1)
Quarter: 2015Q1

REPORT INFORMATION
  Report Type: Spontaneous
  Country: FR (occurrence: FR)
  Receive Date: 20150116
  Receipt Date: 20150116
  Transmission Date: 20150721
  Serious: Yes (Death, Other)
  Sender: FDA-Public Use
  Company Number: FR-ASTRAZENECA-2015SE04141

PATIENT
  Age: 76 Year
  Sex: Female

DRUGS (6)
  1. GARDENAL [Suspect]
     Active Substance: PHENOBARBITAL
     Indication: SEIZURE
     Route: 048
     Dates: start: 20141202, end: 20141216
  2. DILANTIN [Suspect]
     Active Substance: PHENYTOIN
     Indication: SEIZURE
     Dosage: 250 MG/ 5 ML
     Route: 042
     Dates: start: 20141202, end: 20141216
  3. LOXEN [Suspect]
     Active Substance: NICARDIPINE HYDROCHLORIDE
     Route: 041
     Dates: start: 20141206, end: 20141216
  4. KEPPRA [Suspect]
     Active Substance: LEVETIRACETAM
     Indication: SEIZURE
     Route: 048
     Dates: start: 20141202, end: 20141216
  5. SCOPOLAMINE [Concomitant]
     Active Substance: SCOPOLAMINE
     Dates: start: 20141212
  6. INEXIUM [Suspect]
     Active Substance: ESOMEPRAZOLE
     Route: 041
     Dates: start: 20141206, end: 20141216

REACTIONS (2)
  - Acute generalised exanthematous pustulosis [Unknown]
  - Death [Fatal]

NARRATIVE: CASE EVENT DATE: 20141214
